FAERS Safety Report 4830177-5 (Version None)
Quarter: 2005Q4

REPORT INFORMATION
  Report Type: 
  Country: None (occurrence: None)
  Receive Date: 20051117
  Receipt Date: 20051108
  Transmission Date: 20060501
  Serious: Yes (Hospitalization)
  Sender: FDA-Public Use
  Company Number: US-MERCK-0511USA01223

PATIENT
  Age: 70 Year
  Sex: Male

DRUGS (3)
  1. PROPECIA [Suspect]
     Indication: HYPERTENSION
     Route: 048
     Dates: start: 20051001, end: 20051107
  2. PLAVIX [Suspect]
     Route: 065
  3. LIPITOR [Concomitant]
     Route: 065

REACTIONS (4)
  - CEREBROVASCULAR ACCIDENT [None]
  - DRUG DISPENSING ERROR [None]
  - MEDICATION ERROR [None]
  - WRONG DRUG ADMINISTERED [None]
